FAERS Safety Report 12209407 (Version 2)
Quarter: 2016Q2

REPORT INFORMATION
  Report Type: Report from Study
  Country: US (occurrence: US)
  Receive Date: 20160324
  Receipt Date: 20160513
  Transmission Date: 20160815
  Serious: Yes (Hospitalization)
  Sender: FDA-Public Use
  Company Number: US-TARO-2016TAR00250

PATIENT
  Age: 71 Year
  Sex: Male
  Weight: 71.7 kg

DRUGS (9)
  1. PANTOPRAZOLE [Concomitant]
     Active Substance: PANTOPRAZOLE SODIUM
     Dosage: 40 MG, 1X/DAY
     Route: 048
     Dates: start: 2008
  2. UNSPECIFIED MULTIVITAMIN [Concomitant]
     Dosage: 1 DOSAGE UNITS, 1X/DAY
     Route: 048
     Dates: start: 2010
  3. BLINDED PLACEBO [Suspect]
     Active Substance: INVESTIGATIONAL PRODUCT
     Indication: ACTINIC KERATOSIS
     Dosage: UNK UNK, 3X/WEEK
     Route: 061
     Dates: start: 20151026, end: 20151120
  4. ALEVE [Concomitant]
     Active Substance: NAPROXEN SODIUM
     Dosage: UNK, AS NEEDED
     Route: 048
     Dates: start: 1974
  5. ALDARA [Suspect]
     Active Substance: IMIQUIMOD
     Indication: ACTINIC KERATOSIS
     Dosage: UNK UNK, 3X/WEEK
     Route: 061
     Dates: start: 20151026, end: 20151120
  6. BLINDED IMIQUIMOD CREAM 5% (BA/BE) [Suspect]
     Active Substance: IMIQUIMOD
     Indication: ACTINIC KERATOSIS
     Dosage: UNK UNK, 3X/WEEK
     Route: 061
     Dates: start: 20151026, end: 20151120
  7. BLINDED PLACEBO [Suspect]
     Active Substance: INVESTIGATIONAL PRODUCT
     Dosage: UNK UNK, 3X/WEEK
     Route: 061
     Dates: start: 20151221, end: 20160115
  8. ALDARA [Suspect]
     Active Substance: IMIQUIMOD
     Dosage: UNK UNK, 3X/WEEK
     Route: 061
     Dates: start: 20151221, end: 20160115
  9. BLINDED IMIQUIMOD CREAM 5% (BA/BE) [Suspect]
     Active Substance: IMIQUIMOD
     Dosage: UNK UNK, 3X/WEEK
     Route: 061
     Dates: start: 20151221, end: 20160115

REACTIONS (1)
  - Hernia hiatus repair [Recovered/Resolved]

NARRATIVE: CASE EVENT DATE: 20160303
